FAERS Safety Report 4851785-1 (Version None)
Quarter: 2005Q4

REPORT INFORMATION
  Report Type: 
  Country: None (occurrence: None)
  Receive Date: 20051209
  Receipt Date: 20051123
  Transmission Date: 20060501
  Serious: Yes (Hospitalization)
  Sender: FDA-Public Use
  Company Number: 12874

PATIENT
  Age: 41 Year
  Sex: Female

DRUGS (8)
  1. PAMIDRONATE [Suspect]
     Indication: BONE MARROW DISORDER
     Dosage: 90 MG FREQ IV
     Route: 042
     Dates: start: 20050929, end: 20050929
  2. PAMIDRONATE [Suspect]
     Indication: METASTASES TO BONE
     Dosage: 90 MG FREQ IV
     Route: 042
     Dates: start: 20050929, end: 20050929
  3. NEXIUM [Concomitant]
  4. PERFALGAN [Concomitant]
  5. SOLU-MEDROL [Concomitant]
  6. NEURONTIN [Concomitant]
  7. ZECLAR [Concomitant]
  8. DIFFU K [Concomitant]

REACTIONS (2)
  - HYPERSENSITIVITY [None]
  - SHOCK [None]
